FAERS Safety Report 7456358-2 (Version None)
Quarter: 2011Q2

REPORT INFORMATION
  Report Type: 
  Country: None (occurrence: None)
  Receive Date: 20110503
  Receipt Date: 20110425
  Transmission Date: 20111010
  Serious: Yes (Hospitalization)
  Sender: FDA-Public Use
  Company Number: US-GILEAD-2011-0038987

PATIENT
  Age: 64 Year
  Sex: Female

DRUGS (2)
  1. LETAIRIS [Suspect]
     Indication: PRODUCT USED FOR UNKNOWN INDICATION
     Route: 048
     Dates: start: 20101110
  2. ADCIRCA [Concomitant]

REACTIONS (1)
  - SYNCOPE [None]
